FAERS Safety Report 8455117-1 (Version None)
Quarter: 2012Q2

REPORT INFORMATION
  Report Type: 
  Country: None (occurrence: None)
  Receive Date: 20120621
  Receipt Date: 20120613
  Transmission Date: 20120825
  Serious: Yes (Other)
  Sender: FDA-Public Use
  Company Number: US-US-EMD SERONO, INC.-7140185

PATIENT
  Sex: Female
  Weight: 43 kg

DRUGS (9)
  1. SAIZEN [Suspect]
     Route: 058
     Dates: start: 20110330
  2. METHOTREXATE [Concomitant]
     Indication: PRODUCT USED FOR UNKNOWN INDICATION
  3. FOLIC ACID [Concomitant]
     Indication: PRODUCT USED FOR UNKNOWN INDICATION
  4. SAIZEN [Suspect]
     Route: 058
     Dates: start: 20111123
  5. SAIZEN [Suspect]
     Indication: GROWTH RETARDATION
     Route: 058
     Dates: start: 20100905
  6. SAIZEN [Suspect]
     Route: 058
     Dates: start: 20110720
  7. NAPROXEN (ALEVE) [Concomitant]
     Indication: PRODUCT USED FOR UNKNOWN INDICATION
  8. SAIZEN [Suspect]
     Indication: JUVENILE ARTHRITIS
     Route: 058
     Dates: start: 20101201
  9. MAXAIR [Concomitant]
     Indication: EXERCISE ADEQUATE

REACTIONS (5)
  - WEIGHT DECREASED [None]
  - JOINT DISLOCATION [None]
  - ARTHRITIS [None]
  - NOCTURIA [None]
  - BLOOD INSULIN INCREASED [None]
